FAERS Safety Report 5694412-6 (Version None)
Quarter: 2008Q2

REPORT INFORMATION
  Report Type: 
  Country: None (occurrence: None)
  Receive Date: 20080403
  Receipt Date: 20080403
  Transmission Date: 20081010
  Serious: Yes (Other)
  Sender: FDA-Public Use
  Company Number: None

PATIENT
  Age: 3 Year
  Sex: Male
  Weight: 22.6799 kg

DRUGS (2)
  1. SINGULAIR [Suspect]
     Indication: ASTHMA
     Dosage: ONE TABLET ONCE AT NIGHT PO
     Route: 048
     Dates: start: 20070501, end: 20070701
  2. SINGULAIR [Suspect]
     Indication: ASTHMA
     Dosage: ONE TABLET ONCE AT NIGHT PO
     Route: 048
     Dates: start: 20070901, end: 20071215

REACTIONS (7)
  - ABNORMAL BEHAVIOUR [None]
  - AFFECTIVE DISORDER [None]
  - ANXIETY [None]
  - DEPRESSION [None]
  - FEAR [None]
  - INSOMNIA [None]
  - PHARMACEUTICAL PRODUCT COMPLAINT [None]
